FAERS Safety Report 8428320-4 (Version None)
Quarter: 2012Q2

REPORT INFORMATION
  Report Type: 
  Country: None (occurrence: None)
  Receive Date: 20120611
  Receipt Date: 20120607
  Transmission Date: 20120825
  Serious: Yes (Hospitalization)
  Sender: FDA-Public Use
  Company Number: US-TEVA-342052USA

PATIENT
  Age: 65 Year
  Sex: Male
  Weight: 128 kg

DRUGS (26)
  1. CHLORHEXIDINE GLUCONATE [Concomitant]
     Dosage: 2% TOPICAL CLOTH, QPM
  2. LORAZEPAM [Concomitant]
     Route: 042
  3. PROCHLORPERAZINE [Concomitant]
  4. CYANOCOBALAMIN [Concomitant]
     Dosage: 1 MILLIGRAM;
     Route: 048
  5. FILGRASTIM [Concomitant]
     Dosage: 900 MICROGRAM; 300MCG/ML
     Route: 058
  6. OMEPRAZOLE [Concomitant]
     Dosage: 20 MILLIGRAM;
     Route: 048
  7. VITAMINS WITH MINERALS [Concomitant]
     Dosage: 1 TABLET;
     Route: 048
  8. ONDANSETRON [Concomitant]
     Dosage: 4MG/2ML
     Route: 042
  9. AMLODIPINE [Concomitant]
     Dosage: 5 MILLIGRAM;
     Route: 048
  10. COLECALCIFEROL [Concomitant]
     Route: 048
  11. WARFARIN [Concomitant]
     Dosage: 1 MILLIGRAM;
     Route: 048
  12. TREANDA [Suspect]
     Route: 042
     Dates: start: 20120605
  13. ETOPOSIDE [Suspect]
     Route: 042
     Dates: start: 20120605
  14. NEUPOGEN [Suspect]
     Route: 058
     Dates: start: 20120609
  15. FUROSEMIDE [Concomitant]
     Dosage: 40MG/4ML
     Route: 042
  16. ACYCLOVIR [Concomitant]
     Dosage: 1000 MILLIGRAM;
     Route: 048
  17. DIPHENHYDRAMINE HCL [Concomitant]
     Route: 042
  18. DEXAMETHASONE [Suspect]
     Route: 048
     Dates: start: 20120605
  19. SIMVASTATIN [Concomitant]
     Dosage: 40 MILLIGRAM;
     Route: 048
  20. EPINEPHRINE [Concomitant]
     Route: 058
  21. HYDROCORTISONE [Concomitant]
     Route: 042
  22. CALCIUM CARBONATE [Concomitant]
     Dosage: B1D
     Route: 048
  23. CITALOPRAM [Concomitant]
     Dosage: 40 MILLIGRAM;
     Route: 048
  24. METOPROLOL TARTRATE [Concomitant]
     Dosage: 100 MILLIGRAM;
     Route: 048
  25. DIPHENHYDRAMINE HCL [Concomitant]
     Dosage: 25-50 MG
     Route: 042
  26. LORAZEPAM [Concomitant]

REACTIONS (1)
  - RENAL FAILURE [None]
